FAERS Safety Report 5864241-9 (Version None)
Quarter: 2008Q3

REPORT INFORMATION
  Report Type: 
  Country: None (occurrence: None)
  Receive Date: 20080829
  Receipt Date: 20080527
  Transmission Date: 20090109
  Serious: No
  Sender: FDA-Public Use
  Company Number: US-ABBOTT-08P-163-0453617-00

PATIENT
  Sex: Male

DRUGS (3)
  1. SIMCOR [Suspect]
     Indication: HYPERLIPIDAEMIA
     Dosage: 500MG/20MG 1 IN 1 DAY
     Route: 048
  2. SIMCOR [Suspect]
     Route: 048
  3. ERYTHROMYCIN [Concomitant]
     Indication: DRUG USE FOR UNKNOWN INDICATION
     Route: 061

REACTIONS (4)
  - BURNING SENSATION [None]
  - ERYTHEMA [None]
  - FLUSHING [None]
  - PARAESTHESIA [None]
